FAERS Safety Report 7893351-X (Version None)
Quarter: 2011Q4

REPORT INFORMATION
  Report Type: 
  Country: None (occurrence: None)
  Receive Date: 20111104
  Receipt Date: 20111028
  Transmission Date: 20120403
  Serious: Yes (Other)
  Sender: FDA-Public Use
  Company Number: GB-PFIZER INC-2011265195

PATIENT
  Age: 19 Year
  Sex: Female
  Weight: 57 kg

DRUGS (1)
  1. DINOPROSTONE [Suspect]
     Indication: LABOUR INDUCTION
     Dosage: 2 MG, UNK
     Route: 067
     Dates: start: 20111010, end: 20111010

REACTIONS (4)
  - DIZZINESS [None]
  - TINNITUS [None]
  - CONVULSION [None]
  - BLOOD PRESSURE INCREASED [None]
